FAERS Safety Report 8585365-1 (Version None)
Quarter: 2012Q3

REPORT INFORMATION
  Report Type: 
  Country: None (occurrence: None)
  Receive Date: 20120810
  Receipt Date: 20120802
  Transmission Date: 20120928
  Serious: Yes (Hospitalization, Other)
  Sender: FDA-Public Use
  Company Number: GB-ASTELLAS-2012EU005224

PATIENT
  Sex: Male
  Weight: 92 kg

DRUGS (7)
  1. DUTASTERIDE [Concomitant]
     Indication: BENIGN PROSTATIC HYPERPLASIA
     Dosage: 500 MG, UID/QD
     Route: 048
     Dates: start: 20091009
  2. VESICARE [Suspect]
  3. VESICARE [Suspect]
     Indication: POLLAKIURIA
     Dosage: 10 MG, UID/QD
     Route: 048
  4. VESICARE [Suspect]
     Indication: URGE INCONTINENCE
  5. AMLODIPINE [Concomitant]
     Indication: HYPERTENSION
     Dosage: UNK
     Route: 048
     Dates: start: 20091118, end: 20120724
  6. ESCITALOPRAM [Concomitant]
     Indication: DEPRESSION
     Dosage: 10 MG, UID/QD
     Route: 048
     Dates: start: 20091118
  7. VESICARE [Suspect]
     Dosage: 5 MG, UID/QD
     Route: 048
     Dates: start: 20120316, end: 20120427

REACTIONS (4)
  - SYNCOPE [None]
  - URINARY TRACT OBSTRUCTION [None]
  - URINARY RETENTION [None]
  - DRY MOUTH [None]
